FAERS Safety Report 7033789-6 (Version None)
Quarter: 2010Q4

REPORT INFORMATION
  Report Type: 
  Country: None (occurrence: None)
  Receive Date: 20101007
  Receipt Date: 20100928
  Transmission Date: 20110411
  Serious: Yes (Other)
  Sender: FDA-Public Use
  Company Number: PHHY2010US38740

PATIENT
  Sex: Female

DRUGS (16)
  1. EXTAVIA [Suspect]
     Indication: MULTIPLE SCLEROSIS
     Dosage: 0.25 MG, QOD
     Route: 058
     Dates: start: 20100522
  2. AMPYRA [Concomitant]
     Dosage: 10 MG, BID
  3. AMPYRA [Concomitant]
     Dosage: 10 MG, QD
  4. GABAPENTIN [Concomitant]
     Dosage: 600 MG, QD
  5. ALBUTEROL [Concomitant]
     Dosage: 90 UG, Q4H
  6. MELOXICAM [Concomitant]
     Dosage: 50 MG, QD
  7. OXYCODONE [Concomitant]
     Dosage: 5/325 PRN
  8. BACLOFEN [Concomitant]
     Dosage: 2 DF, QID
  9. TEMAZEPAM [Concomitant]
     Dosage: 30 MG, QHS
  10. METOCLOPRAMIDE [Concomitant]
     Dosage: 10 MG 1 TAB BEFORE MEAL AND QHS
  11. AMITRIPTYLINE [Concomitant]
     Dosage: 2 DF, QHS
  12. VITAMIN D [Concomitant]
     Dosage: 1000 MG, QD
  13. DOXAZOSIN MESYLATE [Concomitant]
     Dosage: 1 MG, QD
  14. METOPROLOL TARTRATE [Concomitant]
     Dosage: 50 MG, QD
  15. DETROL [Concomitant]
     Dosage: 2 MG, QD
  16. CYMBALTA [Concomitant]
     Dosage: 60 MG, QD

REACTIONS (14)
  - ABDOMINAL DISCOMFORT [None]
  - DYSPNOEA [None]
  - EATING DISORDER [None]
  - FEELING COLD [None]
  - HALLUCINATION [None]
  - HEADACHE [None]
  - INFLUENZA LIKE ILLNESS [None]
  - INJECTION SITE ERYTHEMA [None]
  - INJECTION SITE HAEMATOMA [None]
  - INJECTION SITE OEDEMA [None]
  - INSOMNIA [None]
  - MUSCLE SPASMS [None]
  - MUSCULAR WEAKNESS [None]
  - OEDEMA PERIPHERAL [None]
